FAERS Safety Report 24350741 (Version 1)
Quarter: 2024Q3

REPORT INFORMATION
  Report Type: Spontaneous
  Country: US (occurrence: US)
  Receive Date: 20240923
  Receipt Date: 20240923
  Transmission Date: 20241016
  Serious: No
  Sender: GLAXOSMITHKLINE
  Company Number: US-GSKCCFUS-Case-02103144_AE-116119

PATIENT
  Sex: Female

DRUGS (1)
  1. FLOVENT DISKUS [Suspect]
     Active Substance: FLUTICASONE PROPIONATE
     Indication: Asthma
     Dosage: 1 PUFF(S)
     Route: 055

REACTIONS (3)
  - Increased upper airway secretion [Not Recovered/Not Resolved]
  - Dysphonia [Not Recovered/Not Resolved]
  - Inappropriate schedule of product administration [Unknown]
